FAERS Safety Report 9326327 (Version 2)
Quarter: 2013Q2

REPORT INFORMATION
  Report Type: Spontaneous
  Country: BR (occurrence: None)
  Receive Date: 20130530
  Receipt Date: 20130625
  Transmission Date: 20140414
  Serious: Yes (Hospitalization)
  Sender: FDA-Public Use
  Company Number: BR-1198404

PATIENT
  Age: 70 Year
  Sex: Female
  Weight: 61 kg

DRUGS (5)
  1. TRAVATAN [Suspect]
     Route: 047
     Dates: start: 2010
  2. AZORGA [Suspect]
     Route: 047
     Dates: start: 2010
  3. SINVASTATINA [Concomitant]
  4. OMEPRAZOL [Concomitant]
  5. AMIODARONE [Concomitant]

REACTIONS (2)
  - Coronary artery bypass [None]
  - Heart valve operation [None]
